FAERS Safety Report 9382965 (Version 1)
Quarter: 2013Q3

REPORT INFORMATION
  Report Type: Spontaneous
  Country: US (occurrence: US)
  Receive Date: 20130703
  Receipt Date: 20130703
  Transmission Date: 20140515
  Serious: Yes (Hospitalization)
  Sender: FDA-Public Use
  Company Number: US-B.I. PHARMACEUTICALS,INC./RIDGEFIELD-2013-BI-18614BP

PATIENT
  Age: 83 Year
  Sex: Female
  Weight: 61 kg

DRUGS (12)
  1. SPIRIVA [Suspect]
     Indication: CHRONIC OBSTRUCTIVE PULMONARY DISEASE
     Dosage: 18 MG
     Route: 055
     Dates: start: 201207
  2. SYMBICORT [Concomitant]
     Indication: CHRONIC OBSTRUCTIVE PULMONARY DISEASE
     Dosage: FORMULATION:INHALATION SOLUTION; STRENGTH: 160MCG/4.5MCG; DAILY DOSE: 640MCG/18MCG
     Route: 055
     Dates: start: 20130621
  3. ASPIRIN [Concomitant]
     Indication: CARDIAC DISORDER
     Dosage: 81 MG
     Route: 048
  4. SIMVASTATIN [Concomitant]
     Indication: BLOOD CHOLESTEROL INCREASED
     Dosage: 10 MG
     Route: 048
  5. OMEPRAZOLE [Concomitant]
     Indication: GASTROOESOPHAGEAL REFLUX DISEASE
     Dosage: 40 MG
     Route: 048
  6. CALCIUM WITH VITAMIN D [Concomitant]
     Indication: BONE DISORDER
     Dosage: 1700 MG
     Route: 048
  7. LOSARTAN [Concomitant]
     Indication: HYPERTENSION
     Dosage: 75 MG
     Route: 048
  8. BRIMONIDINE TARTRATE 0.2% [Concomitant]
     Indication: OPEN ANGLE GLAUCOMA
     Dosage: FORMULATION:OPHTHALMIC SOLUTION; ROUTE: R EYE;  STRENGTH: 1 DROP; DAILY DOSE: 2 DROPS
  9. TRAVATAN [Concomitant]
     Indication: OPEN ANGLE GLAUCOMA
     Dosage: FORMULATION:OPHTHALMIC SOLUTION; ROUTE: R EYE, STRENGTH: 1 DROP; DAILY DOSE: 1 DROP
  10. HCTZ [Concomitant]
     Indication: FLUID RETENTION
     Dosage: 12.5 MG
     Route: 048
  11. FISH OIL [Concomitant]
     Indication: CARDIAC DISORDER
     Dosage: 2000 MG
     Route: 048
  12. STOOL SOFTENER [Concomitant]
     Indication: FAECES HARD
     Dosage: 200 MG
     Route: 048

REACTIONS (10)
  - Small intestinal obstruction [Recovered/Resolved]
  - Muscle strain [Recovered/Resolved]
  - Muscle strain [Recovered/Resolved]
  - Aphonia [Not Recovered/Not Resolved]
  - Vision blurred [Not Recovered/Not Resolved]
  - Oropharyngeal pain [Recovered/Resolved]
  - Lower respiratory tract infection [Not Recovered/Not Resolved]
  - Vitamin D decreased [Not Recovered/Not Resolved]
  - Product quality issue [Recovered/Resolved]
  - Product quality issue [Recovered/Resolved]
